FAERS Safety Report 13128437 (Version 1)
Quarter: 2017Q1

REPORT INFORMATION
  Report Type: Spontaneous
  Country: US (occurrence: US)
  Receive Date: 20170118
  Receipt Date: 20170118
  Transmission Date: 20170428
  Serious: Yes (Other)
  Sender: FDA-Public Use
  Company Number: US-SAOL THERAPEUTICS-2017SAO00085

PATIENT
  Age: 47 Year
  Sex: Female

DRUGS (6)
  1. BACLOFEN. [Suspect]
     Active Substance: BACLOFEN
     Dosage: 240 ?G, \DAY
     Route: 037
  2. BACLOFEN. [Suspect]
     Active Substance: BACLOFEN
     Dosage: UNK
  3. FENTANYL. [Suspect]
     Active Substance: FENTANYL
     Dosage: 3993 ?G, \DAY
     Dates: start: 20170109
  4. BACLOFEN. [Suspect]
     Active Substance: BACLOFEN
     Dosage: 324 ?G, \DAY
     Dates: start: 20170109
  5. FENTANYL. [Suspect]
     Active Substance: FENTANYL
     Dosage: 3000 ?G, \DAY
     Route: 037
     Dates: end: 20170109
  6. FENTANYL. [Suspect]
     Active Substance: FENTANYL
     Dosage: UNK

REACTIONS (1)
  - Therapy non-responder [Recovered/Resolved]

NARRATIVE: CASE EVENT DATE: 20170109
